FAERS Safety Report 9099954 (Version 1)
Quarter: 2013Q1

REPORT INFORMATION
  Report Type: Spontaneous
  Country: US (occurrence: US)
  Receive Date: 20130215
  Receipt Date: 20130215
  Transmission Date: 20140127
  Serious: Yes (Other)
  Sender: FDA-Public Use
  Company Number: US-PFIZER INC-2013057073

PATIENT
  Age: 72 Year
  Sex: Male
  Weight: 70.3 kg

DRUGS (3)
  1. CHANTIX [Suspect]
     Indication: SMOKING CESSATION THERAPY
     Dosage: 0.5 MG, 1X/DAY
     Route: 048
     Dates: start: 20121224, end: 201212
  2. CHANTIX [Suspect]
     Dosage: 0.5 MG, 2X/DAY
     Route: 048
     Dates: start: 201212, end: 20130108
  3. SPIRIVA [Concomitant]
     Dosage: UNK

REACTIONS (10)
  - Haemorrhage [Recovered/Resolved]
  - Activities of daily living impaired [Recovered/Resolved]
  - Prostatomegaly [Recovered/Resolved]
  - Hypokinesia [Recovered/Resolved]
  - Peripheral coldness [Recovered/Resolved]
  - Oedema peripheral [Recovered/Resolved]
  - Pruritus [Recovered/Resolved]
  - Pain in extremity [Recovered/Resolved]
  - Listless [Recovered/Resolved]
  - Apathy [Recovered/Resolved]
